FAERS Safety Report 7907085-6 (Version None)
Quarter: 2011Q4

REPORT INFORMATION
  Report Type: 
  Country: None (occurrence: None)
  Receive Date: 20111110
  Receipt Date: 20110520
  Transmission Date: 20120403
  Serious: No
  Sender: FDA-Public Use
  Company Number: US-ASTRAZENECA-2011SE12376

PATIENT
  Age: 57 Year
  Sex: Male

DRUGS (16)
  1. LAMOTRIGINE [Concomitant]
  2. CLONAZEPAM [Concomitant]
  3. PLAVIX [Concomitant]
  4. NIASPAN [Concomitant]
  5. PROTONIX [Concomitant]
  6. LEXAPRO [Concomitant]
  7. MULTI-DAY VITAMINS [Concomitant]
  8. LISINOPRIL [Suspect]
     Route: 048
  9. SOTALOL HCL [Concomitant]
  10. ZETIA [Concomitant]
  11. ASPIRIN [Concomitant]
  12. CRESTOR [Suspect]
     Route: 048
  13. NITROGLYCERIN [Concomitant]
  14. ACETAMINOPHEN [Concomitant]
  15. TRILIPIX [Concomitant]
  16. RANEXA [Concomitant]

REACTIONS (2)
  - PAIN IN JAW [None]
  - ARTERIOSCLEROSIS [None]
